FAERS Safety Report 6207226-5 (Version None)
Quarter: 2009Q2

REPORT INFORMATION
  Report Type: 
  Country: None (occurrence: None)
  Receive Date: 20090522
  Receipt Date: 20090406
  Transmission Date: 20091009
  Serious: Yes (Hospitalization)
  Sender: FDA-Public Use
  Company Number: 8044559

PATIENT
  Age: 39 Year
  Sex: Female
  Weight: 68 kg

DRUGS (12)
  1. CIMZIA [Suspect]
     Indication: CROHN'S DISEASE
     Dosage: 400 MG SC
     Route: 058
     Dates: start: 20090319, end: 20090406
  2. SYNTHROID [Concomitant]
  3. COLESTID [Concomitant]
  4. PREDNISONE [Concomitant]
  5. DILAUDID [Concomitant]
  6. BENTYL [Concomitant]
  7. LOMOTIL [Concomitant]
  8. CELEXA [Concomitant]
  9. TEGRETOL [Concomitant]
  10. ELAVIL [Concomitant]
  11. CALCIUM [Concomitant]
  12. MULTI-VITAMIN [Concomitant]

REACTIONS (10)
  - CONTUSION [None]
  - CROHN'S DISEASE [None]
  - INSOMNIA [None]
  - MIOSIS [None]
  - OCULAR HYPERAEMIA [None]
  - RASH [None]
  - VERTIGO [None]
  - VISION BLURRED [None]
  - VOMITING [None]
  - WOUND [None]
